FAERS Safety Report 11174092 (Version 11)
Quarter: 2016Q1

REPORT INFORMATION
  Report Type: Spontaneous
  Country: US (occurrence: US)
  Receive Date: 20150609
  Receipt Date: 20160118
  Transmission Date: 20160525
  Serious: Yes (Hospitalization, Other)
  Sender: FDA-Public Use
  Company Number: US-JNJFOC-20150520321

PATIENT
  Age: 42 Year
  Sex: Male
  Weight: 79.38 kg

DRUGS (13)
  1. INVEGA SUSTENNA [Suspect]
     Active Substance: PALIPERIDONE PALMITATE
     Indication: DELUSION
     Route: 030
     Dates: start: 20140515, end: 2015
  2. INVEGA SUSTENNA [Suspect]
     Active Substance: PALIPERIDONE PALMITATE
     Indication: DELUSION
     Route: 030
     Dates: start: 201403, end: 2014
  3. INVEGA SUSTENNA [Suspect]
     Active Substance: PALIPERIDONE PALMITATE
     Indication: HALLUCINATION, AUDITORY
     Route: 030
     Dates: start: 20140515, end: 2015
  4. INVEGA [Suspect]
     Active Substance: PALIPERIDONE
     Indication: SCHIZOAFFECTIVE DISORDER
     Route: 048
     Dates: start: 201403
  5. INVEGA SUSTENNA [Suspect]
     Active Substance: PALIPERIDONE PALMITATE
     Indication: DELUSION
     Route: 030
  6. INVEGA SUSTENNA [Suspect]
     Active Substance: PALIPERIDONE PALMITATE
     Indication: HALLUCINATION, AUDITORY
     Route: 030
  7. ALCOHOL. [Suspect]
     Active Substance: ALCOHOL
     Indication: PRODUCT USED FOR UNKNOWN INDICATION
     Route: 065
  8. INVEGA SUSTENNA [Suspect]
     Active Substance: PALIPERIDONE PALMITATE
     Indication: HALLUCINATION, AUDITORY
     Route: 030
     Dates: start: 201403, end: 2014
  9. INVEGA SUSTENNA [Suspect]
     Active Substance: PALIPERIDONE PALMITATE
     Indication: SCHIZOAFFECTIVE DISORDER
     Route: 030
     Dates: start: 201403, end: 2014
  10. INVEGA [Suspect]
     Active Substance: PALIPERIDONE
     Indication: DELUSION
     Route: 048
     Dates: start: 201403
  11. INVEGA SUSTENNA [Suspect]
     Active Substance: PALIPERIDONE PALMITATE
     Indication: SCHIZOAFFECTIVE DISORDER
     Route: 030
  12. INVEGA [Suspect]
     Active Substance: PALIPERIDONE
     Indication: HALLUCINATION, AUDITORY
     Route: 048
     Dates: start: 201403
  13. INVEGA SUSTENNA [Suspect]
     Active Substance: PALIPERIDONE PALMITATE
     Indication: SCHIZOAFFECTIVE DISORDER
     Route: 030
     Dates: start: 20140515, end: 2015

REACTIONS (37)
  - Motor dysfunction [Not Recovered/Not Resolved]
  - Urethral stenosis [Not Recovered/Not Resolved]
  - Abdominal distension [Unknown]
  - Neutrophilia [Not Recovered/Not Resolved]
  - Lymphadenopathy [Unknown]
  - Echovirus test positive [Unknown]
  - Protein total increased [Not Recovered/Not Resolved]
  - Delusion [Unknown]
  - Deafness [Not Recovered/Not Resolved]
  - Upper respiratory tract infection [Unknown]
  - General symptom [Unknown]
  - Dysuria [Not Recovered/Not Resolved]
  - Dyskinesia [Not Recovered/Not Resolved]
  - Gastrointestinal sounds abnormal [Unknown]
  - Weight increased [Unknown]
  - Urinary retention [Not Recovered/Not Resolved]
  - Cerebral atrophy [Not Recovered/Not Resolved]
  - Biopsy bone marrow [Not Recovered/Not Resolved]
  - Meningitis [Not Recovered/Not Resolved]
  - Hallucination, auditory [Unknown]
  - Urinary tract infection [Not Recovered/Not Resolved]
  - Headache [Not Recovered/Not Resolved]
  - Hyperprolactinaemia [Recovered/Resolved]
  - Asthenia [Not Recovered/Not Resolved]
  - Cognitive disorder [Not Recovered/Not Resolved]
  - Malaise [Not Recovered/Not Resolved]
  - Middle insomnia [Not Recovered/Not Resolved]
  - Adverse event [Unknown]
  - Fatigue [Not Recovered/Not Resolved]
  - Hypersomnia [Unknown]
  - Major depression [Not Recovered/Not Resolved]
  - Hypotonic urinary bladder [Not Recovered/Not Resolved]
  - Dizziness [Not Recovered/Not Resolved]
  - Disturbance in attention [Unknown]
  - Hypersensitivity [Unknown]
  - Hypothalamo-pituitary disorder [Unknown]
  - Vision blurred [Not Recovered/Not Resolved]

NARRATIVE: CASE EVENT DATE: 2014
